FAERS Safety Report 6710702-X (Version None)
Quarter: 2010Q2

REPORT INFORMATION
  Report Type: 
  Country: None (occurrence: None)
  Receive Date: 20100504
  Receipt Date: 20100504
  Transmission Date: 20101027
  Serious: No
  Sender: FDA-Public Use
  Company Number: None

PATIENT
  Age: 5 Month
  Sex: Female
  Weight: 7.2576 kg

DRUGS (2)
  1. TYLENOL (CAPLET) [Suspect]
     Indication: PAIN
     Dosage: 0.4 6 HOURS
     Dates: start: 20100315, end: 20100317
  2. TYLENOL (CAPLET) [Suspect]
     Indication: PYREXIA
     Dosage: 0.8 6 HOURS
     Dates: start: 20100423, end: 20100426

REACTIONS (1)
  - UNEVALUABLE EVENT [None]
